FAERS Safety Report 11683306 (Version 1)
Quarter: 2015Q4

REPORT INFORMATION
  Report Type: Spontaneous
  Country: JP (occurrence: JP)
  Receive Date: 20151029
  Receipt Date: 20151029
  Transmission Date: 20160304
  Serious: Yes (Other)
  Sender: FDA-Public Use
  Company Number: JP-GLAXOSMITHKLINE-JP2015GSK154165

PATIENT
  Age: 31 Year
  Sex: Male

DRUGS (3)
  1. FLUDARABINE [Concomitant]
     Active Substance: FLUDARABINE PHOSPHATE
     Indication: ACUTE BIPHENOTYPIC LEUKAEMIA
  2. MELPHALAN [Suspect]
     Active Substance: MELPHALAN
     Indication: ACUTE BIPHENOTYPIC LEUKAEMIA
  3. BUSULFAN [Suspect]
     Active Substance: BUSULFAN
     Indication: ACUTE BIPHENOTYPIC LEUKAEMIA

REACTIONS (5)
  - Pleural effusion [Recovered/Resolved]
  - Off label use [Unknown]
  - Renal disorder [Recovered/Resolved]
  - Pneumonia [Recovered/Resolved]
  - Cystitis haemorrhagic [Recovered/Resolved]
